FAERS Safety Report 9617120 (Version 2)
Quarter: 2013Q4

REPORT INFORMATION
  Report Type: Spontaneous
  Country: US (occurrence: US)
  Receive Date: 20131011
  Receipt Date: 20131011
  Transmission Date: 20140711
  Serious: Yes (Hospitalization)
  Sender: FDA-Public Use
  Company Number: US-AMGEN-USASP2013065778

PATIENT
  Age: 63 Year
  Sex: Male
  Weight: 58.96 kg

DRUGS (1)
  1. XGEVA [Suspect]
     Indication: METASTASES TO BONE
     Dosage: 120 UNK, Q4WK
     Route: 058
     Dates: start: 20130909, end: 20130916

REACTIONS (1)
  - Hypocalcaemia [Recovered/Resolved]
